FAERS Safety Report 23523010 (Version 1)
Quarter: 2024Q1

REPORT INFORMATION
  Report Type: Spontaneous
  Country: US (occurrence: None)
  Receive Date: 20240213
  Receipt Date: 20240213
  Transmission Date: 20240410
  Serious: No
  Sender: FDA-Public Use
  Company Number: None

PATIENT
  Age: 59 Year
  Sex: Female
  Weight: 81 kg

DRUGS (11)
  1. REPATHA [Suspect]
     Active Substance: EVOLOCUMAB
     Indication: Blood cholesterol increased
     Dosage: 2 INJECTIONS TWICE A MONTH SUBCUTANEOUS?
     Route: 058
     Dates: start: 20230626, end: 20231230
  2. MINOXIDIL [Concomitant]
     Active Substance: MINOXIDIL
  3. VITAMINS [Concomitant]
     Active Substance: VITAMINS
  4. VITAMIN C [Concomitant]
     Active Substance: ASCORBIC ACID
  5. VITAMIN D [Concomitant]
     Active Substance: VITAMIN D NOS
  6. BERBERINE [Concomitant]
     Active Substance: BERBERINE
  7. MAGNESIUM [Concomitant]
     Active Substance: MAGNESIUM
  8. FISH OIL [Concomitant]
     Active Substance: FISH OIL
  9. VITAMIN B COMPLEX [Concomitant]
     Active Substance: CYANOCOBALAMIN\DEXPANTHENOL\NIACINAMIDE\PYRIDOXINE HYDROCHLORIDE\RIBOFLAVIN 5^-PHOSPHATE SODIUM\THIA
  10. Nutrafol vitamins for hair loss [Concomitant]
  11. PROBIOTICS NOS [Concomitant]
     Active Substance: PROBIOTICS NOS

REACTIONS (14)
  - Back pain [None]
  - Pain [None]
  - Pain in extremity [None]
  - Arthralgia [None]
  - Pain [None]
  - Gait disturbance [None]
  - Limb discomfort [None]
  - Pain in extremity [None]
  - Sleep disorder [None]
  - Sinus disorder [None]
  - Fatigue [None]
  - Loss of personal independence in daily activities [None]
  - Blood glucose increased [None]
  - Glucose tolerance impaired [None]

NARRATIVE: CASE EVENT DATE: 20231229
